FAERS Safety Report 12995371 (Version 2)
Quarter: 2016Q4

REPORT INFORMATION
  Report Type: Report from Study
  Country: US (occurrence: US)
  Receive Date: 20161202
  Receipt Date: 20161208
  Transmission Date: 20170207
  Serious: Yes (Death, Hospitalization, Other)
  Sender: FDA-Public Use
  Company Number: US-009507513-1611USA013981

PATIENT
  Age: 86 Year
  Sex: Male

DRUGS (1)
  1. KEYTRUDA [Suspect]
     Active Substance: PEMBROLIZUMAB
     Indication: PANCREATIC CARCINOMA
     Dosage: 1 DOSE, ONCE
     Route: 042
     Dates: start: 20161027, end: 20161027

REACTIONS (3)
  - Product use issue [Unknown]
  - Malignant neoplasm progression [Fatal]
  - Pneumonia [Unknown]

NARRATIVE: CASE EVENT DATE: 2016
